FAERS Safety Report 14634774 (Version 2)
Quarter: 2018Q1

REPORT INFORMATION
  Report Type: Spontaneous
  Country: US (occurrence: US)
  Receive Date: 20180314
  Receipt Date: 20180316
  Transmission Date: 20180509
  Serious: No
  Sender: FDA-Public Use
  Company Number: US-PFIZER INC-2018106657

PATIENT
  Age: 68 Year

DRUGS (1)
  1. LYRICA [Suspect]
     Active Substance: PREGABALIN
     Indication: NEURALGIA
     Dosage: 50 MG, 2X/DAY
     Dates: start: 201803, end: 20180310

REACTIONS (6)
  - Oropharyngeal pain [Unknown]
  - Oral pain [Unknown]
  - Glossodynia [Unknown]
  - Throat irritation [Not Recovered/Not Resolved]
  - Tongue discomfort [Unknown]
  - Oral discomfort [Not Recovered/Not Resolved]

NARRATIVE: CASE EVENT DATE: 20180310
